FAERS Safety Report 21632749 (Version 2)
Quarter: 2023Q1

REPORT INFORMATION
  Report Type: Report from Study
  Country: US (occurrence: US)
  Receive Date: 20221123
  Receipt Date: 20230203
  Transmission Date: 20230417
  Serious: No
  Sender: FDA-Public Use
  Company Number: US-ABBVIE-22K-163-4501003-00

PATIENT
  Age: 67 Year
  Sex: Female

DRUGS (2)
  1. HUMIRA [Suspect]
     Active Substance: ADALIMUMAB
     Indication: Uveitis
     Dosage: CITRATE FREE
     Route: 058
     Dates: start: 20220401
  2. HUMIRA [Suspect]
     Active Substance: ADALIMUMAB
     Indication: Uveitis
     Route: 058

REACTIONS (14)
  - Gastrointestinal disorder [Recovering/Resolving]
  - COVID-19 [Recovered/Resolved]
  - Gait disturbance [Recovering/Resolving]
  - Fatigue [Not Recovered/Not Resolved]
  - Pain [Recovered/Resolved]
  - Pulmonary congestion [Recovered/Resolved]
  - Musculoskeletal stiffness [Recovering/Resolving]
  - Uveitis [Recovering/Resolving]
  - Fatigue [Recovered/Resolved]
  - Disorientation [Recovered/Resolved]
  - Influenza like illness [Recovered/Resolved]
  - Tooth fracture [Unknown]
  - Dizziness [Not Recovered/Not Resolved]
  - Urinary tract infection [Unknown]

NARRATIVE: CASE EVENT DATE: 20220724
